FAERS Safety Report 13469335 (Version 1)
Quarter: 2017Q2

REPORT INFORMATION
  Report Type: Spontaneous
  Country: US (occurrence: US)
  Receive Date: 20170421
  Receipt Date: 20170421
  Transmission Date: 20170830
  Serious: Yes (Life-Threatening, Hospitalization, Other)
  Sender: FDA-Public Use
  Company Number: US-TARO-2017TAR00270

PATIENT
  Sex: Male

DRUGS (1)
  1. AMIODARONE HCL TABLET 200 MG [Suspect]
     Active Substance: AMIODARONE HYDROCHLORIDE
     Indication: ATRIAL FIBRILLATION
     Dosage: UNK
     Route: 048
     Dates: start: 200804

REACTIONS (15)
  - Pulmonary hypertension [Not Recovered/Not Resolved]
  - Blindness [Not Recovered/Not Resolved]
  - Atrial fibrillation [Unknown]
  - Drug ineffective for unapproved indication [Unknown]
  - Cardiomegaly [Not Recovered/Not Resolved]
  - Off label use [Unknown]
  - Pulmonary toxicity [Not Recovered/Not Resolved]
  - Asthenia [Unknown]
  - Anaemia [Not Recovered/Not Resolved]
  - Visual impairment [Not Recovered/Not Resolved]
  - Fatigue [Unknown]
  - Hypertension [Unknown]
  - Haemorrhage [Not Recovered/Not Resolved]
  - Haemorrhage [Unknown]
  - Heart rate irregular [Unknown]

NARRATIVE: CASE EVENT DATE: 201205
